FAERS Safety Report 6183908-9 (Version None)
Quarter: 2009Q2

REPORT INFORMATION
  Report Type: 
  Country: None (occurrence: None)
  Receive Date: 20090506
  Receipt Date: 20090506
  Transmission Date: 20091009
  Serious: Yes (Life-Threatening)
  Sender: FDA-Public Use
  Company Number: None

PATIENT
  Age: 46 Year
  Sex: Female

DRUGS (4)
  1. RESTASIS [Suspect]
     Indication: DRY EYE
     Dosage: 1 DROP BOTH EYES BID OCULAR
     Route: 047
     Dates: start: 20060101
  2. NASONEX [Suspect]
     Indication: RHINITIS ALLERGIC
     Dosage: 2 SPRAYS EVERY DAY NASAL
     Route: 045
     Dates: start: 20040101
  3. EFFEXOR [Concomitant]
  4. METADATE CD [Concomitant]

REACTIONS (3)
  - IMMUNOSUPPRESSION [None]
  - NASAL SINUS CANCER [None]
  - NEUROENDOCRINE CARCINOMA [None]
